FAERS Safety Report 20037784 (Version 3)
Quarter: 2022Q4

REPORT INFORMATION
  Report Type: Spontaneous
  Country: US (occurrence: US)
  Receive Date: 20211105
  Receipt Date: 20221115
  Transmission Date: 20230112
  Serious: No
  Sender: FDA-Public Use
  Company Number: US-PFIZER INC-2021400371

PATIENT
  Age: 29 Year
  Sex: Male

DRUGS (2)
  1. XELJANZ XR [Suspect]
     Active Substance: TOFACITINIB CITRATE
     Indication: Psoriatic arthropathy
     Dosage: 11 MG, DAILY
     Route: 048
     Dates: start: 20210226
  2. METHOTREXATE [Concomitant]
     Active Substance: METHOTREXATE

REACTIONS (4)
  - Malaise [Unknown]
  - COVID-19 [Unknown]
  - Hypertension [Unknown]
  - Intentional dose omission [Unknown]

NARRATIVE: CASE EVENT DATE: 20220101
